FAERS Safety Report 8334857 (Version 2)
Quarter: 2012Q4

REPORT INFORMATION
  Report Type: 
  Country: US (occurrence: US)
  Receive Date: 20120112
  Receipt Date: 20121112
  Transmission Date: 20130627
  Serious: Yes (Death, Hospitalization)
  Sender: FDA-Public Use
  Company Number: US-GLAXOSMITHKLINE-A0860467A

PATIENT
  Age: 71 Year
  Sex: Male

DRUGS (1)
  1. AVANDIA [Suspect]
     Indication: DIABETES MELLITUS
     Dosage: 4MG Per day
     Route: 048
     Dates: start: 200208, end: 20040918

REACTIONS (17)
  - Cerebral haemorrhage [Fatal]
  - Thrombocytopenia [Unknown]
  - Cardiac failure congestive [Unknown]
  - Dyspnoea [Unknown]
  - Fatigue [Unknown]
  - Fluid retention [Unknown]
  - Diabetes mellitus [Unknown]
  - Renal failure [Unknown]
  - Ascites [Unknown]
  - Abdominal distension [Unknown]
  - Lethargy [Unknown]
  - Somnolence [Unknown]
  - Laboratory test abnormal [Unknown]
  - Accidental poisoning [Unknown]
  - Nervous system disorder [Unknown]
  - Coma [Unknown]
  - Haemorrhage [Unknown]
